FAERS Safety Report 9323468 (Version 2)
Quarter: 2013Q3

REPORT INFORMATION
  Report Type: Spontaneous
  Country: US (occurrence: US)
  Receive Date: 20130603
  Receipt Date: 20130823
  Transmission Date: 20140515
  Serious: No
  Sender: FDA-Public Use
  Company Number: US-PFIZER INC-2013163041

PATIENT
  Age: 56 Year
  Sex: Female
  Weight: 90.7 kg

DRUGS (7)
  1. XELJANZ [Suspect]
     Indication: RHEUMATOID ARTHRITIS
     Dosage: 5 MG, 2X/DAY
     Route: 048
     Dates: start: 20130304
  2. XELJANZ [Suspect]
     Dosage: UNK
     Route: 048
     Dates: end: 20130715
  3. AMLODIPINE [Concomitant]
     Dosage: 2.5MG
  4. FLAXSEED OIL [Concomitant]
     Dosage: UNK
  5. ASPIRIN [Concomitant]
     Dosage: 81 MG
  6. PRILOSEC [Concomitant]
     Dosage: 10 MG
  7. PREDNISONE [Concomitant]
     Dosage: 1 MG

REACTIONS (2)
  - Hepatic enzyme abnormal [Unknown]
  - Headache [Unknown]
